FAERS Safety Report 7605921-4 (Version None)
Quarter: 2011Q3

REPORT INFORMATION
  Report Type: 
  Country: None (occurrence: None)
  Receive Date: 20110713
  Receipt Date: 20110629
  Transmission Date: 20111222
  Serious: Yes (Other)
  Sender: FDA-Public Use
  Company Number: PHHY2011BR58412

PATIENT
  Sex: Female

DRUGS (4)
  1. RASILEZ [Suspect]
     Dosage: 300 MG, UNK
  2. INSULIN [Concomitant]
     Dosage: 80 IU, QD
  3. FORMOTEROL FUMARATE [Concomitant]
     Dosage: UNK
  4. ATENOLOL AND CHLORTHALIDONE [Concomitant]

REACTIONS (4)
  - BACK PAIN [None]
  - BLOOD PRESSURE INCREASED [None]
  - PNEUMONIA [None]
  - HEART RATE INCREASED [None]
